FAERS Safety Report 9981669 (Version 1)
Quarter: 2014Q1

REPORT INFORMATION
  Report Type: Spontaneous
  Country: US (occurrence: None)
  Receive Date: 20140306
  Receipt Date: 20140306
  Transmission Date: 20141002
  Serious: Yes (Life-Threatening, Hospitalization, Other)
  Sender: FDA-Public Use
  Company Number: None

PATIENT
  Age: 58 Year
  Sex: Male
  Weight: 173 kg

DRUGS (10)
  1. MAFENIDE [Suspect]
     Indication: INFECTION PROPHYLAXIS
     Dosage: APPLY 1/16^ THICK LAYER, QD, TOPICAL
  2. PERIDEX (CHLORHEXIDINE) [Concomitant]
  3. DOCUSATE [Concomitant]
  4. ENOXAPARIN [Concomitant]
  5. ESOMEPRAZOLE [Concomitant]
  6. ADVAIR [Concomitant]
  7. INSULIN DETEMIR [Concomitant]
  8. OXYCODONE [Concomitant]
  9. MIRALAX [Concomitant]
  10. QUETIAPINE [Concomitant]

REACTIONS (2)
  - Tubulointerstitial nephritis [None]
  - Renal failure acute [None]
